FAERS Safety Report 23180644 (Version 1)
Quarter: 2023Q4

REPORT INFORMATION
  Report Type: Other
  Country: US (occurrence: None)
  Receive Date: 20231114
  Receipt Date: 20231114
  Transmission Date: 20240109
  Serious: Yes (Other)
  Sender: FDA-Public Use
  Company Number: US-ROCHE-3443421

PATIENT
  Age: 88 Year
  Sex: Female

DRUGS (4)
  1. LUCENTIS [Suspect]
     Active Substance: RANIBIZUMAB
     Indication: Choroidal neovascularisation
     Dosage: RECEIVES IN LEFT EYE, SHOT
     Route: 050
  2. LUCENTIS [Suspect]
     Active Substance: RANIBIZUMAB
     Indication: Neovascular age-related macular degeneration
  3. VABYSMO [Suspect]
     Active Substance: FARICIMAB\FARICIMAB-SVOA
     Indication: Neovascular age-related macular degeneration
     Dosage: DATE OF TREATMENT: 11/MAY/2023 AND 31/AUG/2023. RECEIVES IN RIGHT EYE, SHOT
     Route: 050
  4. VABYSMO [Suspect]
     Active Substance: FARICIMAB\FARICIMAB-SVOA
     Indication: Choroidal neovascularisation

REACTIONS (5)
  - Central vision loss [Unknown]
  - Eye disorder [Recovered/Resolved]
  - Headache [Unknown]
  - Pain [Unknown]
  - Visual impairment [Unknown]
